FAERS Safety Report 23758505 (Version 1)
Quarter: 2024Q2

REPORT INFORMATION
  Report Type: Spontaneous
  Country: CA (occurrence: CA)
  Receive Date: 20240418
  Receipt Date: 20240418
  Transmission Date: 20240716
  Serious: Yes (Other)
  Sender: FDA-Public Use
  Company Number: CA-TEVA-VS-3184220

PATIENT
  Age: 62 Year

DRUGS (3)
  1. IMATINIB MESYLATE [Suspect]
     Active Substance: IMATINIB MESYLATE
     Indication: Chronic myeloid leukaemia
     Route: 065
  2. DASATINIB [Suspect]
     Active Substance: DASATINIB
     Indication: Chronic myeloid leukaemia
     Route: 048
  3. DASATINIB [Suspect]
     Active Substance: DASATINIB
     Indication: Chronic myeloid leukaemia
     Route: 048

REACTIONS (7)
  - Abdominal pain [Unknown]
  - Drug ineffective [Unknown]
  - Asthenia [Unknown]
  - Diabetes mellitus [Unknown]
  - Intermittent claudication [Unknown]
  - Peripheral vascular disorder [Unknown]
  - Weight decreased [Unknown]
